FAERS Safety Report 22281577 (Version 1)
Quarter: 2023Q2

REPORT INFORMATION
  Report Type: Spontaneous
  Country: AR (occurrence: AR)
  Receive Date: 20230504
  Receipt Date: 20230504
  Transmission Date: 20230722
  Serious: Yes (Hospitalization)
  Sender: FDA-Public Use
  Company Number: AR-NOVOPROD-1056895

PATIENT
  Age: 62 Year
  Sex: Female

DRUGS (1)
  1. OZEMPIC [Suspect]
     Active Substance: SEMAGLUTIDE
     Indication: Product used for unknown indication
     Dosage: 0.25 (DOSAGE UNIT, DOSE FREQUENCY OR ROUT OF ADMINISTRATION NOT REPORTED)

REACTIONS (4)
  - Malaise [Unknown]
  - Dehydration [Unknown]
  - Asthenia [Unknown]
  - Nausea [Unknown]
